FAERS Safety Report 18274827 (Version 2)
Quarter: 2020Q4

REPORT INFORMATION
  Report Type: Report from Study
  Country: CA (occurrence: CA)
  Receive Date: 20200916
  Receipt Date: 20201203
  Transmission Date: 20210113
  Serious: Yes (Other)
  Sender: FDA-Public Use
  Company Number: CA-JNJFOC-20200907623

PATIENT
  Age: 9 Year
  Sex: Male
  Weight: 21.38 kg

DRUGS (2)
  1. REMICADE [Suspect]
     Active Substance: INFLIXIMAB
     Indication: JUVENILE IDIOPATHIC ARTHRITIS
     Dosage: ON 02/SEP/2020, THE PATIENT RECEIVED 57TH 500 MG INFLIXIMAB INFUSION.
     Route: 042
     Dates: start: 20161112
  2. REMICADE [Suspect]
     Active Substance: INFLIXIMAB
     Indication: UVEITIS

REACTIONS (2)
  - Eye operation [Not Recovered/Not Resolved]
  - Eye infection [Not Recovered/Not Resolved]

NARRATIVE: CASE EVENT DATE: 2016
